FAERS Safety Report 23143763 (Version 1)
Quarter: 2023Q4

REPORT INFORMATION
  Report Type: Spontaneous
  Country: US (occurrence: None)
  Receive Date: 20231102
  Receipt Date: 20231102
  Transmission Date: 20240110
  Serious: No
  Sender: FDA-Public Use
  Company Number: None

PATIENT
  Age: 12 Month
  Sex: Female
  Weight: 3.5 kg

DRUGS (8)
  1. QUETIAPINE [Suspect]
     Active Substance: QUETIAPINE
  2. LAMOTRIGINE [Suspect]
     Active Substance: LAMOTRIGINE
  3. BUPROPION [Suspect]
     Active Substance: BUPROPION
  4. PROMETHAZINE [Suspect]
     Active Substance: PROMETHAZINE HYDROCHLORIDE
  5. METOCLOPRAMIDE [Suspect]
     Active Substance: METOCLOPRAMIDE
  6. FOLATE SODIUM [Suspect]
     Active Substance: FOLATE SODIUM
  7. TIMOLOL MALEATE [Concomitant]
     Active Substance: TIMOLOL MALEATE
  8. PROPRANOLOL [Concomitant]
     Active Substance: PROPRANOLOL HYDROCHLORIDE

REACTIONS (2)
  - Infantile haemangioma [None]
  - Maternal drugs affecting foetus [None]

NARRATIVE: CASE EVENT DATE: 20230515
